FAERS Safety Report 22654994 (Version 1)
Quarter: 2023Q2

REPORT INFORMATION
  Report Type: Spontaneous
  Country: US (occurrence: None)
  Receive Date: 20230628
  Receipt Date: 20230628
  Transmission Date: 20230722
  Serious: No
  Sender: FDA-Public Use
  Company Number: None

PATIENT
  Sex: Female

DRUGS (1)
  1. ZEJULA [Suspect]
     Active Substance: NIRAPARIB
     Indication: Ovarian cancer
     Dosage: 300MG DAILY MOUTH?
     Route: 048
     Dates: start: 202306, end: 202306

REACTIONS (7)
  - Back pain [None]
  - Headache [None]
  - Paraesthesia [None]
  - Confusional state [None]
  - Nausea [None]
  - Palpitations [None]
  - Nonspecific reaction [None]
